FAERS Safety Report 6704242-1 (Version None)
Quarter: 2010Q2

REPORT INFORMATION
  Report Type: 
  Country: None (occurrence: None)
  Receive Date: 20100430
  Receipt Date: 20090707
  Transmission Date: 20101027
  Serious: No
  Sender: FDA-Public Use
  Company Number: US-TYCO HEALTHCARE/MALLINCKRODT-T200901343

PATIENT
  Sex: Male

DRUGS (4)
  1. ACETAMINOPHEN AND HYDROCODONE BITARTRATE [Suspect]
     Indication: PAIN IN EXTREMITY
     Dosage: 1 TABLET, Q4H
     Route: 048
     Dates: start: 20090626
  2. FENTANYL [Suspect]
     Indication: PAIN IN EXTREMITY
     Dosage: 100 UG, Q3 DAYS
     Route: 062
     Dates: start: 20090627
  3. FENTANYL [Suspect]
     Dosage: 50 UG, Q3 DAYS
     Route: 062
     Dates: start: 20090621, end: 20090627
  4. GABAPENTIN [Suspect]
     Indication: PAIN IN EXTREMITY
     Dosage: 1 TABLET, TID
     Route: 048
     Dates: start: 20090626

REACTIONS (2)
  - FLATULENCE [None]
  - MIDDLE INSOMNIA [None]
